FAERS Safety Report 9640737 (Version 1)
Quarter: 2013Q4

REPORT INFORMATION
  Report Type: Spontaneous
  Country: US (occurrence: None)
  Receive Date: 20131022
  Receipt Date: 20131022
  Transmission Date: 20140711
  Serious: Yes (Other)
  Sender: FDA-Public Use
  Company Number: None

PATIENT
  Age: 83 Year
  Sex: Female
  Weight: 54.43 kg

DRUGS (1)
  1. LIDOCAINE [Suspect]
     Indication: ARTHROPATHY

REACTIONS (2)
  - Pain in extremity [None]
  - Contusion [None]
